FAERS Safety Report 5016211-0 (Version None)
Quarter: 2006Q2

REPORT INFORMATION
  Report Type: 
  Country: None (occurrence: None)
  Receive Date: 20060414
  Receipt Date: 20060124
  Transmission Date: 20061013
  Serious: No
  Sender: FDA-Public Use
  Company Number: 2006SP000430

PATIENT
  Age: 58 Year
  Sex: Female
  Weight: 65.7716 kg

DRUGS (5)
  1. LUNESTA [Suspect]
     Indication: INSOMNIA
     Dosage: MG; HS; ORAL;    MG; HS; ORAL
     Route: 048
     Dates: start: 20060122, end: 20060101
  2. LUNESTA [Suspect]
     Indication: INSOMNIA
     Dosage: MG; HS; ORAL;    MG; HS; ORAL
     Route: 048
     Dates: start: 20060101, end: 20060201
  3. UNKNOWN HEART MEDICATION [Concomitant]
  4. UNKNOWN THYROID MEDICATION [Concomitant]
  5. ANTIDEPRESSANT [Concomitant]

REACTIONS (2)
  - DYSGEUSIA [None]
  - INSOMNIA [None]
